FAERS Safety Report 20726267 (Version 2)
Quarter: 2022Q2

REPORT INFORMATION
  Report Type: Spontaneous
  Country: TR (occurrence: TR)
  Receive Date: 20220419
  Receipt Date: 20220603
  Transmission Date: 20220721
  Serious: Yes (Hospitalization, Other)
  Sender: FDA-Public Use
  Company Number: TR-PFIZER INC-202200547681

PATIENT
  Age: 57 Year
  Sex: Male

DRUGS (5)
  1. SILDENAFIL CITRATE [Interacting]
     Active Substance: SILDENAFIL CITRATE
     Indication: Erectile dysfunction
     Dosage: 50 MG/DAY
  2. PRAMIPEXOLE [Interacting]
     Active Substance: PRAMIPEXOLE
     Indication: Parkinson^s disease
     Dosage: 1.5 MG/DAY
  3. ASIAN GINSENG [Interacting]
     Active Substance: ASIAN GINSENG
     Dosage: UNK
  4. RASAGILINE MESYLATE [Concomitant]
     Active Substance: RASAGILINE MESYLATE
     Indication: Parkinson^s disease
     Dosage: 1 MG/DAY
  5. AMANTADINE SULFATE [Concomitant]
     Active Substance: AMANTADINE SULFATE
     Indication: Parkinson^s disease
     Dosage: 200 MG/DAY

REACTIONS (2)
  - Drug interaction [Unknown]
  - Psychotic symptom [Unknown]
